FAERS Safety Report 6368488-7 (Version None)
Quarter: 2009Q3

REPORT INFORMATION
  Report Type: 
  Country: None (occurrence: None)
  Receive Date: 20090922
  Receipt Date: 20090915
  Transmission Date: 20100115
  Serious: Yes (Hospitalization)
  Sender: FDA-Public Use
  Company Number: A0808176A

PATIENT
  Age: 78 Year
  Sex: Female

DRUGS (1)
  1. AVANDIA [Suspect]
     Dates: start: 20010101, end: 20050101

REACTIONS (4)
  - BLINDNESS [None]
  - CARDIOVASCULAR DISORDER [None]
  - RETINAL VEIN THROMBOSIS [None]
  - TRANSIENT ISCHAEMIC ATTACK [None]
